FAERS Safety Report 6303408-2 (Version None)
Quarter: 2009Q3

REPORT INFORMATION
  Report Type: 
  Country: None (occurrence: None)
  Receive Date: 20090810
  Receipt Date: 20090729
  Transmission Date: 20100115
  Serious: Yes (Hospitalization)
  Sender: FDA-Public Use
  Company Number: FR-PFIZER INC-2009247050

PATIENT
  Age: 44 Year

DRUGS (5)
  1. DALACINE [Suspect]
     Indication: NECROTISING FASCIITIS
     Dosage: 600 MG, 4X/DAY
     Dates: start: 20090608, end: 20090629
  2. NOZINAN [Suspect]
     Dosage: 20 DROPS, 1X/DAY
     Route: 048
     Dates: start: 20090624, end: 20090629
  3. PENICILLINE G ^PANPHARMA^ [Suspect]
     Indication: NECROTISING FASCIITIS
     Dosage: 1 DF, 4X/DAY
     Route: 042
     Dates: start: 20090612, end: 20090629
  4. TAZOCILLINE [Concomitant]
  5. AMIKLIN [Concomitant]

REACTIONS (1)
  - ACUTE GENERALISED EXANTHEMATOUS PUSTULOSIS [None]
